FAERS Safety Report 24039005 (Version 1)
Quarter: 2024Q3

REPORT INFORMATION
  Report Type: Spontaneous
  Country: US (occurrence: US)
  Receive Date: 20240702
  Receipt Date: 20240702
  Transmission Date: 20241016
  Serious: Yes (Hospitalization)
  Sender: CIPLA
  Company Number: US-CIPLA LTD.-2024US06663

PATIENT

DRUGS (1)
  1. BUPROPION [Suspect]
     Active Substance: BUPROPION
     Indication: Product used for unknown indication
     Dosage: 150 TABLETS OF 150 MG EXTENDED-RELEASE TABLETS
     Route: 065

REACTIONS (2)
  - Overdose [Unknown]
  - Toxicity to various agents [Recovering/Resolving]
